FAERS Safety Report 12652831 (Version 8)
Quarter: 2018Q2

REPORT INFORMATION
  Report Type: Spontaneous
  Country: US (occurrence: US)
  Receive Date: 20160815
  Receipt Date: 20180627
  Transmission Date: 20180711
  Serious: Yes (Congenital Anomaly, Other)
  Sender: FDA-Public Use
  Company Number: PHEH2016US020332

PATIENT
  Sex: Female

DRUGS (2)
  1. ONDANSETRON DR REDDY [Suspect]
     Active Substance: ONDANSETRON
     Indication: FOETAL EXPOSURE DURING PREGNANCY
     Dosage: MOTHER DOSE: 08 MG, 1 DF, Q8H, AS NEEDED (PRN)
     Route: 064
  2. ZOFRAN [Suspect]
     Active Substance: ONDANSETRON HYDROCHLORIDE
     Indication: FOETAL EXPOSURE DURING PREGNANCY
     Route: 064

REACTIONS (42)
  - Rash [Unknown]
  - Ear pain [Unknown]
  - Nose deformity [Unknown]
  - Oropharyngeal pain [Unknown]
  - Abnormal behaviour [Unknown]
  - Supernumerary teeth [Unknown]
  - Ear infection [Unknown]
  - Nasal congestion [Unknown]
  - Foetal exposure during pregnancy [Unknown]
  - Otitis media chronic [Unknown]
  - Concussion [Unknown]
  - Injury [Unknown]
  - Teething [Unknown]
  - Dermatitis contact [Unknown]
  - Rhinorrhoea [Unknown]
  - Upper respiratory tract infection [Unknown]
  - Dry skin [Unknown]
  - Congenital oral malformation [Unknown]
  - Gastrooesophageal reflux disease [Unknown]
  - Decreased appetite [Unknown]
  - Acute sinusitis [Unknown]
  - Candida infection [Unknown]
  - Eustachian tube dysfunction [Unknown]
  - Headache [Unknown]
  - Rhinitis [Unknown]
  - Lice infestation [Unknown]
  - Learning disorder [Unknown]
  - Adenoidal hypertrophy [Unknown]
  - Sleep disorder [Unknown]
  - Ocular hyperaemia [Unknown]
  - Pharyngitis streptococcal [Unknown]
  - Tonsillar hypertrophy [Unknown]
  - Cough [Unknown]
  - Croup infectious [Unknown]
  - Constipation [Unknown]
  - Sneezing [Unknown]
  - Fall [Unknown]
  - Pyrexia [Unknown]
  - Conjunctivitis [Unknown]
  - Bronchitis [Unknown]
  - Cleft lip [Unknown]
  - Pharyngitis [Unknown]
